FAERS Safety Report 8573927-7 (Version None)
Quarter: 2012Q2

REPORT INFORMATION
  Report Type: 
  Country: None (occurrence: None)
  Receive Date: 20120423
  Receipt Date: 20100630
  Transmission Date: 20120825
  Serious: Yes (Other)
  Sender: FDA-Public Use
  Company Number: PHHY2010US28160

PATIENT
  Age: 83 Year
  Sex: Female
  Weight: 60 kg

DRUGS (1)
  1. EXJADE [Suspect]
     Indication: MYELODYSPLASTIC SYNDROME
     Dosage: 1000 MG, QD, ORAL : 500 MG, QD
     Route: 048

REACTIONS (4)
  - DIARRHOEA [None]
  - NIGHT SWEATS [None]
  - SERUM FERRITIN INCREASED [None]
  - PIGMENTATION DISORDER [None]
